FAERS Safety Report 9881906 (Version 1)
Quarter: 2014Q1

REPORT INFORMATION
  Report Type: Spontaneous
  Country: US (occurrence: None)
  Receive Date: 20140205
  Receipt Date: 20140205
  Transmission Date: 20141002
  Serious: Yes (Death)
  Sender: FDA-Public Use
  Company Number: DEP_01881_2014

PATIENT
  Age: 51 Year
  Sex: Female

DRUGS (9)
  1. GABAPENTIN [Suspect]
     Indication: PRODUCT USED FOR UNKNOWN INDICATION
     Dosage: DF
     Route: 048
  2. DILTIAZEM [Suspect]
     Indication: PRODUCT USED FOR UNKNOWN INDICATION
     Dosage: DF
     Route: 048
  3. METOPROLOL [Suspect]
     Indication: PRODUCT USED FOR UNKNOWN INDICATION
     Dosage: DF
     Route: 048
  4. BUPROPION [Suspect]
     Indication: PRODUCT USED FOR UNKNOWN INDICATION
     Route: 048
  5. TRAMADOL [Suspect]
     Indication: PRODUCT USED FOR UNKNOWN INDICATION
     Dosage: DF
     Route: 048
  6. OXCARBAZEPINE [Suspect]
     Indication: PRODUCT USED FOR UNKNOWN INDICATION
     Dosage: DF
     Route: 048
  7. TRAZODONE [Concomitant]
     Indication: PRODUCT USED FOR UNKNOWN INDICATION
     Dosage: DF
     Route: 048
  8. TOPIRAMATE [Suspect]
     Indication: PRODUCT USED FOR UNKNOWN INDICATION
     Dosage: DF
     Route: 048
  9. DIPHENHYDRAMINE [Suspect]
     Indication: PRODUCT USED FOR UNKNOWN INDICATION
     Dosage: DF
     Route: 048

REACTIONS (1)
  - Completed suicide [None]
